FAERS Safety Report 13586483 (Version 1)
Quarter: 2017Q2

REPORT INFORMATION
  Report Type: Spontaneous
  Country: JP (occurrence: JP)
  Receive Date: 20170526
  Receipt Date: 20170526
  Transmission Date: 20170830
  Serious: Yes (Other)
  Sender: FDA-Public Use
  Company Number: JP-PFIZER INC-2017227891

PATIENT
  Sex: Female

DRUGS (4)
  1. FOLIAMIN [Suspect]
     Active Substance: FOLIC ACID
     Route: 048
  2. SALAZOPYRIN [Suspect]
     Active Substance: SULFASALAZINE
     Dosage: 500 MG, 1X/DAY
  3. RHEUMATREX [Suspect]
     Active Substance: METHOTREXATE SODIUM
     Indication: RHEUMATOID ARTHRITIS
     Route: 048
  4. HANGESHASHINTO [Concomitant]
     Active Substance: HERBALS
     Route: 048

REACTIONS (4)
  - Anal haemorrhage [Unknown]
  - Anal inflammation [Unknown]
  - Dyspnoea [Unknown]
  - Colitis ulcerative [Unknown]
